FAERS Safety Report 23431829 (Version 2)
Quarter: 2024Q4

REPORT INFORMATION
  Report Type: Report from Study
  Country: AR (occurrence: AR)
  Receive Date: 20240123
  Receipt Date: 20241209
  Transmission Date: 20250115
  Serious: Yes (Other)
  Sender: RANBAXY
  Company Number: AR-SUN PHARMACEUTICAL INDUSTRIES LTD-2024R1-428559

PATIENT

DRUGS (1)
  1. TRIAMCINOLONE [Suspect]
     Active Substance: TRIAMCINOLONE
     Indication: Endocrine ophthalmopathy
     Dosage: UNK
     Route: 065

REACTIONS (1)
  - Hyperglycaemia [Recovering/Resolving]
